FAERS Safety Report 10638288 (Version 1)
Quarter: 2014Q4

REPORT INFORMATION
  Report Type: Spontaneous
  Country: US (occurrence: None)
  Receive Date: 20141204
  Receipt Date: 20141204
  Transmission Date: 20150529
  Serious: Yes (Other)
  Sender: FDA-Public Use
  Company Number: 201411148

PATIENT
  Age: 65 Year
  Sex: Male

DRUGS (1)
  1. TESTIM [Suspect]
     Active Substance: TESTOSTERONE
     Indication: BLOOD TESTOSTERONE DECREASED
     Route: 062
     Dates: start: 201202, end: 201210

REACTIONS (5)
  - Anxiety [None]
  - Myocardial infarction [None]
  - Injury [None]
  - Pain [None]
  - Economic problem [None]
